FAERS Safety Report 8247665-4 (Version None)
Quarter: 2012Q1

REPORT INFORMATION
  Report Type: 
  Country: None (occurrence: None)
  Receive Date: 20120330
  Receipt Date: 20120327
  Transmission Date: 20120608
  Serious: No
  Sender: FDA-Public Use
  Company Number: US-TEVA-330641USA

PATIENT
  Sex: Female
  Weight: 49.94 kg

DRUGS (4)
  1. SUBOXONE [Concomitant]
     Indication: DRUG DEPENDENCE
  2. PLAN B ONE-STEP [Suspect]
     Indication: POST COITAL CONTRACEPTION
     Dosage: 1.5 MILLIGRAM;
     Route: 048
     Dates: start: 20120327, end: 20120327
  3. FLEXERIL [Concomitant]
     Indication: MUSCLE RELAXANT THERAPY
  4. CLINDAMYCIN [Concomitant]
     Indication: INFECTION

REACTIONS (1)
  - RASH [None]
